FAERS Safety Report 8807747 (Version 2)
Quarter: 2012Q4

REPORT INFORMATION
  Report Type: 
  Country: US (occurrence: US)
  Receive Date: 20120925
  Receipt Date: 20121024
  Transmission Date: 20130627
  Serious: Yes (Other)
  Sender: FDA-Public Use
  Company Number: US-BAYER-2012-099290

PATIENT
  Age: 47 Year
  Sex: Female
  Weight: 73.47 kg

DRUGS (1)
  1. MIRENA [Suspect]
     Indication: CONTRACEPTION
     Dosage: 20 mcg/24hr, CONT
     Route: 015
     Dates: start: 20120820

REACTIONS (3)
  - Genital haemorrhage [Recovered/Resolved]
  - Abdominal pain [Recovered/Resolved]
  - Pain [None]
